FAERS Safety Report 6277741-7 (Version None)
Quarter: 2009Q3

REPORT INFORMATION
  Report Type: 
  Country: None (occurrence: None)
  Receive Date: 20090722
  Receipt Date: 20090713
  Transmission Date: 20100115
  Serious: Yes (Hospitalization)
  Sender: FDA-Public Use
  Company Number: B0579055A

PATIENT
  Sex: Female

DRUGS (21)
  1. LAMICTAL [Suspect]
     Indication: EPILEPSY
     Route: 048
     Dates: start: 20090513, end: 20090604
  2. LEVOTOMIN [Concomitant]
     Dosage: 10MG PER DAY
     Route: 048
     Dates: start: 20090513
  3. HALCION [Concomitant]
     Dosage: .5MG PER DAY
     Route: 048
     Dates: start: 20090513
  4. LAXOBERON [Concomitant]
     Dosage: 5MG PER DAY
     Route: 048
     Dates: start: 20090513, end: 20090519
  5. LAXOBERON [Concomitant]
     Dosage: 10G PER DAY
     Route: 048
     Dates: start: 20090520, end: 20090526
  6. DEPAKENE [Concomitant]
     Dosage: 400MG PER DAY
     Route: 048
     Dates: start: 20090513
  7. LUVOX [Concomitant]
     Dosage: 50MG PER DAY
     Route: 048
     Dates: start: 20090513, end: 20090519
  8. LUVOX [Concomitant]
     Dosage: 100MG PER DAY
     Route: 048
     Dates: start: 20090520
  9. MAGLAX [Concomitant]
     Dosage: 1000MG PER DAY
     Route: 048
     Dates: start: 20090513, end: 20090519
  10. MAGLAX [Concomitant]
     Dosage: 200MG PER DAY
     Route: 048
     Dates: start: 20090520, end: 20090526
  11. MAGLAX [Concomitant]
     Dosage: 2500MG PER DAY
     Route: 048
     Dates: start: 20090527, end: 20090602
  12. UNKNOWN DRUG [Concomitant]
     Dosage: 25MG PER DAY
     Route: 048
     Dates: start: 20090513, end: 20090519
  13. TENORMIN [Concomitant]
     Dosage: 50MG PER DAY
     Route: 048
     Dates: start: 20090527, end: 20090602
  14. TENORMIN [Concomitant]
     Dosage: 10MG PER DAY
     Route: 048
     Dates: start: 20090603
  15. CYANOCOBALAMIN [Concomitant]
     Dosage: 1.5MG PER DAY
     Route: 048
     Dates: start: 20090527
  16. MOHRUS TAPE [Concomitant]
     Dosage: 20MG PER DAY
     Route: 062
     Dates: start: 20090527, end: 20090602
  17. LAXOBERON [Concomitant]
     Dosage: 10ML PER DAY
     Route: 048
     Dates: start: 20090527, end: 20090602
  18. LAXOBERON [Concomitant]
     Dosage: 30ML PER DAY
     Route: 048
     Dates: start: 20090603
  19. JU-KAMA [Concomitant]
     Dosage: 4.5G PER DAY
     Dates: start: 20090603
  20. PURSENNID [Concomitant]
     Dosage: 72MG PER DAY
     Route: 048
     Dates: start: 20090603
  21. GARLIC EXTRACT [Concomitant]

REACTIONS (5)
  - ARRHYTHMIA [None]
  - CONSTIPATION [None]
  - DRUG ERUPTION [None]
  - PHOTOSENSITIVITY REACTION [None]
  - RASH [None]
